FAERS Safety Report 18549843 (Version 3)
Quarter: 2020Q4

REPORT INFORMATION
  Report Type: Spontaneous
  Country: US (occurrence: US)
  Receive Date: 20201126
  Receipt Date: 20201214
  Transmission Date: 20210114
  Serious: Yes (Other)
  Sender: FDA-Public Use
  Company Number: US-PFIZER INC-2020466714

PATIENT
  Age: 53 Year
  Sex: Female
  Weight: 38.56 kg

DRUGS (3)
  1. PRISTIQ EXTENDED-RELEASE [Suspect]
     Active Substance: DESVENLAFAXINE SUCCINATE
     Indication: DEPRESSION
     Dosage: 100 MG, 1X/DAY
     Route: 048
     Dates: end: 2016
  2. LANTUS [Concomitant]
     Active Substance: INSULIN GLARGINE
     Indication: BLOOD GLUCOSE INCREASED
     Dosage: 14 IU, 1X/DAY (A SHOT EVERY NIGHT)
     Dates: start: 2016
  3. ADMELOG [Concomitant]
     Active Substance: INSULIN LISPRO
     Indication: DIABETES MELLITUS
     Dosage: 5-15 UNITS A SHOT IN STOMACH FOUR TIMES A DAY WITH MEALS
     Dates: start: 2016

REACTIONS (2)
  - Therapeutic response unexpected [Unknown]
  - Diabetes mellitus [Unknown]
